FAERS Safety Report 8074988-4 (Version None)
Quarter: 2012Q1

REPORT INFORMATION
  Report Type: 
  Country: None (occurrence: None)
  Receive Date: 20120127
  Receipt Date: 20120118
  Transmission Date: 20120608
  Serious: No
  Sender: FDA-Public Use
  Company Number: US-BIOGENIDEC-2010BI017989

PATIENT
  Age: 34 Year
  Sex: Female

DRUGS (1)
  1. TYSABRI [Suspect]
     Indication: MULTIPLE SCLEROSIS
     Route: 042
     Dates: start: 20090922, end: 20100202

REACTIONS (6)
  - MENSTRUAL DISORDER [None]
  - EYE PAIN [None]
  - FATIGUE [None]
  - ASTHENIA [None]
  - CLUSTER HEADACHE [None]
  - BLINDNESS UNILATERAL [None]
